FAERS Safety Report 14593670 (Version 2)
Quarter: 2018Q1

REPORT INFORMATION
  Report Type: Spontaneous
  Country: US (occurrence: US)
  Receive Date: 20180302
  Receipt Date: 20180316
  Transmission Date: 20180509
  Serious: Yes (Death, Life-Threatening, Other)
  Sender: FDA-Public Use
  Company Number: US-INCYTE CORPORATION-2018IN001973

PATIENT

DRUGS (2)
  1. JAKAFI [Suspect]
     Active Substance: RUXOLITINIB
     Dosage: 10 MG, BID
     Route: 048
     Dates: start: 20150213
  2. JAKAFI [Suspect]
     Active Substance: RUXOLITINIB
     Indication: POLYCYTHAEMIA
     Dosage: ONE TABLET BY MOUTH TWICE DAILY ON MONDAYS, WEDNESDAYS AND FRIDAYS, AND ONE TABLET ONE TIME DAILY ON
     Route: 048
     Dates: start: 20150213

REACTIONS (2)
  - Terminal state [Unknown]
  - Death [Fatal]
